FAERS Safety Report 19120012 (Version 1)
Quarter: 2021Q2

REPORT INFORMATION
  Report Type: Report from Study
  Country: US (occurrence: US)
  Receive Date: 20210412
  Receipt Date: 20210412
  Transmission Date: 20210717
  Serious: No
  Sender: FDA-Public Use
  Company Number: US-ACADIA PHARMACEUTICALS INC.-ACA-2021-PIM-001078

PATIENT
  Age: 69 Year
  Sex: Female

DRUGS (7)
  1. TYLENOL [Concomitant]
     Active Substance: ACETAMINOPHEN
  2. NUPLAZID [Suspect]
     Active Substance: PIMAVANSERIN TARTRATE
     Dosage: 34 MILLIGRAM, BID (EXTRA DOSE)
     Route: 048
     Dates: start: 202103
  3. NUPLAZID [Suspect]
     Active Substance: PIMAVANSERIN TARTRATE
     Indication: PARKINSON^S DISEASE
     Dosage: 34 MILLIGRAM, QD
     Route: 048
     Dates: start: 20210309, end: 202103
  4. C [ASCORBIC ACID] [Concomitant]
  5. MELATONIN [Concomitant]
     Active Substance: MELATONIN
  6. VITAMINS NOS [Concomitant]
     Active Substance: VITAMINS
  7. VITAMIN D3 [Concomitant]
     Active Substance: CHOLECALCIFEROL

REACTIONS (6)
  - Blood glucose increased [Unknown]
  - Accidental overdose [Unknown]
  - Amnesia [Unknown]
  - Hallucination, visual [Unknown]
  - Tremor [Unknown]
  - Incontinence [Unknown]

NARRATIVE: CASE EVENT DATE: 202103
